FAERS Safety Report 4364511-X (Version None)
Quarter: 2004Q2

REPORT INFORMATION
  Report Type: 
  Country: None (occurrence: None)
  Receive Date: 20040521
  Receipt Date: 20040512
  Transmission Date: 20050107
  Serious: Yes (Other)
  Sender: FDA-Public Use
  Company Number: US-JNJFOC-20040502829

PATIENT
  Age: 26 Year
  Sex: Female

DRUGS (2)
  1. DURAGESIC [Suspect]
     Indication: PAIN
     Dosage: 25 UG/HR, 1 IN 72 HOUR, TRANSDERMAL
     Route: 062
     Dates: start: 20040201, end: 20040501
  2. VITAMIN (VITAMIN NOS) [Concomitant]

REACTIONS (4)
  - FEELING COLD [None]
  - PREGNANCY [None]
  - TREATMENT NONCOMPLIANCE [None]
  - ULTRASOUND SCAN ABNORMAL [None]
